FAERS Safety Report 8272628-2 (Version None)
Quarter: 2012Q2

REPORT INFORMATION
  Report Type: 
  Country: None (occurrence: None)
  Receive Date: 20120410
  Receipt Date: 20091125
  Transmission Date: 20120825
  Serious: Yes (Other)
  Sender: FDA-Public Use
  Company Number: PHHY2009TH070464

PATIENT
  Sex: Female

DRUGS (4)
  1. GLEEVEC [Suspect]
     Indication: CHRONIC MYELOID LEUKAEMIA
     Dosage: UNK UKN, UNK
  2. GLEEVEC [Suspect]
     Dosage: 3 DF, UNK
  3. ANALGESICS [Concomitant]
  4. GLEEVEC [Suspect]
     Dosage: 4 DF, UNK

REACTIONS (5)
  - NAUSEA [None]
  - DIABETES MELLITUS [None]
  - VOMITING [None]
  - HEPATITIS B [None]
  - DRUG RESISTANCE [None]
